FAERS Safety Report 7056334-8 (Version None)
Quarter: 2010Q4

REPORT INFORMATION
  Report Type: 
  Country: None (occurrence: None)
  Receive Date: 20101021
  Receipt Date: 20100930
  Transmission Date: 20110411
  Serious: Yes (Hospitalization, Other)
  Sender: FDA-Public Use
  Company Number: US-AMGEN INC.-KDL443166

PATIENT

DRUGS (8)
  1. PROCRIT [Suspect]
     Indication: PRODUCT USED FOR UNKNOWN INDICATION
     Dosage: UNK UNK, UNK
     Dates: start: 20100901
  2. CLOPIDOGREL BISULFATE [Concomitant]
     Dosage: 75 MG, QD
     Route: 048
     Dates: start: 20070101
  3. VALSARTAN [Concomitant]
     Dosage: 20 MG, BID
     Route: 048
     Dates: start: 20070101
  4. GALANTAMINE HYDROBROMIDE [Concomitant]
     Dosage: 8 MG, BID
     Route: 048
     Dates: start: 20070101
  5. CELEXA [Concomitant]
     Dosage: 40 MG, QD
     Route: 048
     Dates: start: 20040101
  6. OMEPRAZOLE [Concomitant]
     Dosage: 20 MG, QD
     Route: 048
     Dates: start: 20070101
  7. ASPIRIN [Concomitant]
     Dosage: 325 MG, QD
     Route: 048
     Dates: start: 20070101
  8. INSULIN HUMAN [Concomitant]

REACTIONS (3)
  - FLUID RETENTION [None]
  - HAEMOGLOBIN ABNORMAL [None]
  - MYOCARDIAL INFARCTION [None]
